FAERS Safety Report 9363319 (Version 1)
Quarter: 2013Q2

REPORT INFORMATION
  Report Type: Spontaneous
  Country: CA (occurrence: CA)
  Receive Date: 20130624
  Receipt Date: 20130624
  Transmission Date: 20140414
  Serious: Yes (Life-Threatening, Hospitalization, Disabling)
  Sender: FDA-Public Use
  Company Number: CA-JNJFOC-20130602384

PATIENT
  Age: 60 Year
  Sex: Male
  Weight: 108 kg

DRUGS (45)
  1. DOXORUBICIN [Suspect]
     Indication: DIFFUSE LARGE B-CELL LYMPHOMA
     Route: 042
     Dates: start: 20111205
  2. CYCLOPHOSPHAMIDE [Suspect]
     Indication: DIFFUSE LARGE B-CELL LYMPHOMA
     Route: 042
     Dates: start: 20111205
  3. OBINUTUZUMAB [Suspect]
     Indication: DIFFUSE LARGE B-CELL LYMPHOMA
     Route: 042
     Dates: start: 20111205
  4. PREDNISOLONE [Suspect]
     Indication: DIFFUSE LARGE B-CELL LYMPHOMA
     Route: 048
     Dates: start: 20111205
  5. VINCRISTINE [Suspect]
     Indication: DIFFUSE LARGE B-CELL LYMPHOMA
     Route: 042
     Dates: start: 20111205
  6. ACETAMINOPHEN [Concomitant]
     Indication: PRODUCT USED FOR UNKNOWN INDICATION
     Route: 065
     Dates: start: 20111205, end: 20120515
  7. ALEVE [Concomitant]
     Indication: PAIN IN EXTREMITY
     Route: 065
     Dates: start: 20111108
  8. ASCORBIC ACID [Concomitant]
     Indication: PRODUCT USED FOR UNKNOWN INDICATION
     Route: 065
     Dates: start: 20111118
  9. AVAPRO [Concomitant]
     Indication: HYPERTENSION
     Route: 065
     Dates: start: 20111118
  10. AVAPRO [Concomitant]
     Indication: PRODUCT USED FOR UNKNOWN INDICATION
     Route: 065
     Dates: start: 20111118
  11. CLAVULIN [Concomitant]
     Indication: CELLULITIS
     Route: 065
  12. COLCHICINE [Concomitant]
     Indication: PAIN
     Route: 065
     Dates: start: 20120714, end: 20120714
  13. CRESTOR [Concomitant]
     Indication: HYPERCHOLESTEROLAEMIA
     Route: 065
  14. DIPHENHYDRAMINE [Concomitant]
     Indication: PRODUCT USED FOR UNKNOWN INDICATION
     Route: 065
     Dates: start: 20111205, end: 20120515
  15. DOCUSATE SODIUM [Concomitant]
     Indication: CONSTIPATION
     Route: 065
     Dates: start: 20120707, end: 20120725
  16. ENOXAPARIN [Concomitant]
     Indication: PRODUCT USED FOR UNKNOWN INDICATION
     Route: 065
     Dates: start: 20120129, end: 20120129
  17. FENOFIBRATE [Concomitant]
     Indication: HYPERCHOLESTEROLAEMIA
     Route: 065
     Dates: start: 20120725
  18. FENTANYL [Concomitant]
     Indication: PAIN
     Route: 065
     Dates: start: 20120707, end: 20120709
  19. FLUDROCORTISONE [Concomitant]
     Indication: PYREXIA
     Route: 065
     Dates: start: 20120109, end: 20120109
  20. GLUCOSAMINE SULPHATE [Concomitant]
     Indication: PRODUCT USED FOR UNKNOWN INDICATION
     Route: 065
  21. GRANISETRON [Concomitant]
     Indication: PRODUCT USED FOR UNKNOWN INDICATION
     Route: 065
     Dates: start: 20111205, end: 20120515
  22. HEPARIN SODIUM [Concomitant]
     Indication: THROMBOSIS
     Route: 065
     Dates: start: 20120703, end: 20120714
  23. HUMULIN INSULIN [Concomitant]
     Indication: DIABETES MELLITUS
     Route: 065
     Dates: start: 20120109, end: 20120109
  24. HYDROCORTISONE [Concomitant]
     Indication: PYREXIA
     Route: 065
     Dates: start: 20120109, end: 20120109
  25. INSULIN ISOPHANE [Concomitant]
     Indication: DIABETES MELLITUS
     Route: 065
  26. KETOROLAC TROMETAMOL [Concomitant]
     Indication: PAIN
     Route: 065
     Dates: start: 20120707, end: 20120725
  27. METFORMIN [Concomitant]
     Indication: DIABETES MELLITUS
     Route: 065
  28. MOMETASONE [Concomitant]
     Indication: NASAL CONGESTION
     Route: 065
     Dates: start: 20120714, end: 20120725
  29. MORPHINE [Concomitant]
     Indication: PAIN
     Route: 065
     Dates: start: 20120707, end: 20120725
  30. OXYCOCET [Concomitant]
     Indication: PAIN IN EXTREMITY
     Route: 065
     Dates: start: 20120703, end: 20120704
  31. PIOGLITAZONE HYDROCHLORIDE [Concomitant]
     Indication: DIABETES MELLITUS
     Route: 065
     Dates: start: 20120625
  32. POTASSIUM CHLORIDE [Concomitant]
     Indication: BLOOD POTASSIUM DECREASED
     Route: 065
     Dates: start: 20120703, end: 20120706
  33. RANITIDINE [Concomitant]
     Indication: PRODUCT USED FOR UNKNOWN INDICATION
     Route: 065
     Dates: start: 20111205, end: 20120515
  34. SAXAGLIPTIN [Concomitant]
     Indication: DIABETES MELLITUS
     Route: 065
  35. SODIUM CHLORIDE [Concomitant]
     Indication: DEHYDRATION
     Route: 065
     Dates: start: 20120719, end: 20120721
  36. SOLU-MEDROL [Concomitant]
     Indication: HYPOTENSION
     Route: 065
     Dates: start: 20111216, end: 20111216
  37. SULFADIAZINE [Concomitant]
     Indication: BLISTER
     Route: 065
     Dates: start: 20120327
  38. VITAMIN B12 [Concomitant]
     Indication: VITAMIN B12 DEFICIENCY
     Route: 065
     Dates: start: 20120326
  39. VITAMIN D [Concomitant]
     Indication: PRODUCT USED FOR UNKNOWN INDICATION
     Route: 065
     Dates: start: 20111128
  40. PREDNISONE [Concomitant]
     Indication: PRODUCT USED FOR UNKNOWN INDICATION
     Dosage: TIMES 5 DAYS
     Route: 065
  41. NAPROXEN SODIUM [Concomitant]
     Indication: PRODUCT USED FOR UNKNOWN INDICATION
     Route: 065
  42. ROSUVASTATIN [Concomitant]
     Indication: PRODUCT USED FOR UNKNOWN INDICATION
     Route: 065
  43. VALACICLOVIR HYDROCHLORIDE [Concomitant]
     Indication: PRODUCT USED FOR UNKNOWN INDICATION
     Route: 065
  44. FILGRASTIM [Concomitant]
     Indication: PRODUCT USED FOR UNKNOWN INDICATION
     Route: 065
  45. PHOSPHATE [Concomitant]
     Indication: PRODUCT USED FOR UNKNOWN INDICATION
     Route: 065

REACTIONS (12)
  - Acute myocardial infarction [Not Recovered/Not Resolved]
  - Cardiomyopathy [Not Recovered/Not Resolved]
  - Adrenal insufficiency [Recovered/Resolved]
  - Haemoglobin decreased [Unknown]
  - Febrile neutropenia [Recovered/Resolved]
  - Pyrexia [Recovered/Resolved]
  - Hypotension [Recovered/Resolved]
  - Chills [Recovered/Resolved]
  - White blood cell count decreased [Recovered/Resolved]
  - Cellulitis [Recovered/Resolved]
  - Constipation [Recovered/Resolved]
  - Fatigue [Recovered/Resolved]
